FAERS Safety Report 16673728 (Version 1)
Quarter: 2019Q3

REPORT INFORMATION
  Report Type: Report from Study
  Country: GB (occurrence: GB)
  Receive Date: 20190806
  Receipt Date: 20190806
  Transmission Date: 20191004
  Serious: Yes (Other)
  Sender: FDA-Public Use
  Company Number: GB-SAMSUNG BIOEPIS-SB-2019-19109

PATIENT
  Sex: Male

DRUGS (1)
  1. IMRALDI [Suspect]
     Active Substance: ADALIMUMAB
     Indication: COLITIS ULCERATIVE
     Route: 058
     Dates: start: 20190501

REACTIONS (6)
  - Peripheral swelling [Unknown]
  - Malaise [Unknown]
  - Lethargy [Unknown]
  - Kidney infection [Unknown]
  - Urinary tract infection [Unknown]
  - Blood urine present [Unknown]
